FAERS Safety Report 25984166 (Version 1)
Quarter: 2025Q4

REPORT INFORMATION
  Report Type: Report from Study
  Country: US (occurrence: US)
  Receive Date: 20251031
  Receipt Date: 20251031
  Transmission Date: 20260118
  Serious: Yes (Other)
  Sender: RECORDATI
  Company Number: US-ORPHANEU-2025007716

PATIENT
  Age: 53 Year
  Sex: Female

DRUGS (2)
  1. SIGNIFOR [Suspect]
     Active Substance: PASIREOTIDE DIASPARTATE
  2. ISTURISA [Suspect]
     Active Substance: OSILODROSTAT PHOSPHATE
     Indication: Product used for unknown indication
     Dosage: 5 MILLIGRAM
     Dates: start: 20240220

REACTIONS (10)
  - Transient ischaemic attack [Recovered/Resolved]
  - Pericardial effusion [Unknown]
  - Cardiomegaly [Unknown]
  - Bedridden [Recovered/Resolved]
  - Dysarthria [Recovered/Resolved]
  - Hypertension [Recovered/Resolved]
  - Headache [Unknown]
  - Vomiting [Unknown]
  - Nausea [Unknown]
  - Peripheral swelling [Unknown]

NARRATIVE: CASE EVENT DATE: 20251001
